FAERS Safety Report 6172683-X (Version None)
Quarter: 2009Q2

REPORT INFORMATION
  Report Type: 
  Country: None (occurrence: None)
  Receive Date: 20090430
  Receipt Date: 20090427
  Transmission Date: 20091009
  Serious: Yes (Other)
  Sender: FDA-Public Use
  Company Number: FR-JNJFOC-20090302533

PATIENT
  Age: 12 Year
  Sex: Female

DRUGS (1)
  1. CONCERTA LP [Suspect]
     Indication: PSYCHOMOTOR HYPERACTIVITY
     Route: 048

REACTIONS (2)
  - SUICIDE ATTEMPT [None]
  - TREATMENT NONCOMPLIANCE [None]
